FAERS Safety Report 10157020 (Version 1)
Quarter: 2014Q2

REPORT INFORMATION
  Report Type: Spontaneous
  Country: BR (occurrence: BR)
  Receive Date: 20140505
  Receipt Date: 20140505
  Transmission Date: 20141212
  Serious: Yes (Other)
  Sender: FDA-Public Use
  Company Number: PHHY2014BR052691

PATIENT
  Age: 65 Year
  Sex: Female
  Weight: 94 kg

DRUGS (12)
  1. METFORMIN [Suspect]
     Indication: DIABETES MELLITUS
     Dosage: 850 MG, QD
     Dates: end: 20140426
  2. MIRTAZAPINE SANDOZ [Suspect]
     Dosage: 30 MG, QD
     Route: 048
     Dates: start: 20140408, end: 20140426
  3. RIVOTRIL [Concomitant]
     Indication: NERVOUSNESS
     Dosage: 1 MG, QD
  4. RIVOTRIL [Concomitant]
     Indication: SOMNOLENCE
  5. RECONTER [Concomitant]
     Indication: DEPRESSION
     Dosage: 10 MG, QD
  6. NATRILIX [Concomitant]
     Indication: BLOOD PRESSURE
     Dosage: 1.5 MG, QD
  7. ATENOLOL [Concomitant]
     Indication: BLOOD PRESSURE
     Dosage: 50 MG, QD
  8. APRESOLINA [Concomitant]
     Indication: BLOOD PRESSURE
     Dosage: 50 MG, BID
  9. COLLAGEN [Concomitant]
     Dosage: 2 DF, BID
  10. CHROMIUM PICOLINATE [Concomitant]
     Indication: SUPPLEMENTATION THERAPY
     Dosage: 1 DF, BID
  11. CELERG [Concomitant]
     Dosage: 1 DF, QD
  12. GLIFAGE [Concomitant]
     Indication: DIABETES MELLITUS
     Dosage: 500 MG, QD

REACTIONS (10)
  - Oral pustule [Recovered/Resolved]
  - Vision blurred [Unknown]
  - Headache [Recovered/Resolved]
  - Malaise [Unknown]
  - Fatigue [Not Recovered/Not Resolved]
  - Dry mouth [Unknown]
  - Myalgia [Unknown]
  - Confusional state [Unknown]
  - Erythema [Unknown]
  - Pruritus [Unknown]
